FAERS Safety Report 22781674 (Version 7)
Quarter: 2023Q4

REPORT INFORMATION
  Report Type: Report from Study
  Country: US (occurrence: US)
  Receive Date: 20230803
  Receipt Date: 20231206
  Transmission Date: 20240109
  Serious: Yes (Hospitalization, Other)
  Sender: FDA-Public Use
  Company Number: US-PFIZER INC-PV202300131848

PATIENT
  Age: 63 Year
  Sex: Female
  Weight: 115.66 kg

DRUGS (4)
  1. IBRANCE [Suspect]
     Active Substance: PALBOCICLIB
     Indication: Breast cancer female
     Dosage: 125 MG, DAILY FOR 21 DAYS AND 7 DAYS OFF
     Route: 048
     Dates: start: 20230609
  2. IBRANCE [Suspect]
     Active Substance: PALBOCICLIB
     Dosage: 100 MG, DAILY FOR 21 DAYS OFF 7 FOR 28-DAY
     Route: 048
     Dates: start: 202307
  3. IBRANCE [Suspect]
     Active Substance: PALBOCICLIB
     Dosage: 100 MG, DAILY FOR 21 DAYS AND 7 DAYS OFF
     Route: 048
     Dates: start: 2023
  4. LETROZOLE [Concomitant]
     Active Substance: LETROZOLE
     Dosage: UNK

REACTIONS (10)
  - Full blood count decreased [Recovered/Resolved]
  - Dehydration [Unknown]
  - Nausea [Not Recovered/Not Resolved]
  - Fatigue [Not Recovered/Not Resolved]
  - Headache [Unknown]
  - Vomiting [Recovering/Resolving]
  - Panic attack [Not Recovered/Not Resolved]
  - Anxiety [Not Recovered/Not Resolved]
  - Insomnia [Unknown]
  - Diarrhoea [Recovering/Resolving]

NARRATIVE: CASE EVENT DATE: 20230101
